FAERS Safety Report 7921262-X (Version None)
Quarter: 2011Q4

REPORT INFORMATION
  Report Type: 
  Country: None (occurrence: None)
  Receive Date: 20111117
  Receipt Date: 20101108
  Transmission Date: 20120403
  Serious: No
  Sender: FDA-Public Use
  Company Number: US-AMGEN-USASP2010004423

PATIENT
  Age: 41 Year
  Sex: Female

DRUGS (2)
  1. METHOTREXATE [Concomitant]
     Dosage: 4 MG, QWK
     Dates: start: 20101016
  2. ENBREL [Suspect]
     Indication: RHEUMATOID ARTHRITIS
     Dosage: 50 MG, QWK
     Dates: start: 20101016

REACTIONS (8)
  - HEADACHE [None]
  - NASAL CONGESTION [None]
  - NAUSEA [None]
  - VISION BLURRED [None]
  - WRONG TECHNIQUE IN DRUG USAGE PROCESS [None]
  - SINUSITIS [None]
  - RHINORRHOEA [None]
  - INJECTION SITE PAIN [None]
